FAERS Safety Report 12060916 (Version 1)
Quarter: 2016Q1

REPORT INFORMATION
  Report Type: Spontaneous
  Country: US (occurrence: US)
  Receive Date: 20160210
  Receipt Date: 20160210
  Transmission Date: 20160526
  Serious: Yes (Other)
  Sender: FDA-Public Use
  Company Number: US-PFIZER INC-2016077339

PATIENT
  Age: 45 Year
  Sex: Female
  Weight: 91 kg

DRUGS (14)
  1. AROMASIN [Suspect]
     Active Substance: EXEMESTANE
     Indication: BREAST CANCER METASTATIC
     Dosage: 25 MG, 1X/DAY
  2. OMEPRAZOLE. [Concomitant]
     Active Substance: OMEPRAZOLE
     Dosage: 20 MG, 1X/DAY
     Dates: start: 2013
  3. FERROUS SULFATE [Concomitant]
     Active Substance: FERROUS SULFATE\FERROUS SULFATE, DRIED
     Indication: IRON DEFICIENCY
     Dosage: 325 MG, 1X/DAY
     Route: 048
     Dates: start: 201507
  4. HERCEPTIN [Concomitant]
     Active Substance: TRASTUZUMAB
     Dosage: UNK, CYCLIC (EVERY 3-4 WEEKS)
     Dates: start: 201510
  5. PROGENA [Concomitant]
     Dosage: UNK, CYCLIC (EVERY 3-4 WEEKS)
     Dates: start: 201510
  6. PROZAC [Concomitant]
     Active Substance: FLUOXETINE HYDROCHLORIDE
     Indication: PANIC ATTACK
     Dosage: 40 MG, 1X/DAY
     Dates: start: 2002
  7. CETIRIZINE [Concomitant]
     Active Substance: CETIRIZINE HYDROCHLORIDE
     Indication: HYPERSENSITIVITY
     Dosage: 10 MG, 1X/DAY
     Dates: start: 2013
  8. TAXOTERE [Concomitant]
     Active Substance: DOCETAXEL
     Dosage: UNK, CYCLIC (EVERY 3-4 WEEKS)
     Dates: start: 201510
  9. KEPPRA [Concomitant]
     Active Substance: LEVETIRACETAM
     Indication: SEIZURE
     Dosage: 750 MG, 2X/DAY
     Dates: start: 2013
  10. VITAMIN D [Concomitant]
     Active Substance: CHOLECALCIFEROL
     Indication: VITAMIN D DEFICIENCY
     Dosage: 1000 IU, 1X/DAY
     Dates: start: 2013
  11. NEULASTA [Concomitant]
     Active Substance: PEGFILGRASTIM
     Indication: BLOOD COUNT ABNORMAL
     Dosage: UNK, CYCLIC (EVERY 3-4 WEEKS)
     Dates: start: 201510
  12. NIFEDICAL XL [Concomitant]
     Active Substance: NIFEDIPINE
     Indication: BLOOD PRESSURE ABNORMAL
     Dosage: 30 MG, 1X/DAY
     Dates: start: 2006
  13. DOCUSATE [Concomitant]
     Active Substance: DOCUSATE
     Indication: ABNORMAL FAECES
     Dosage: 100 MG, 1X/DAY
     Dates: start: 2013
  14. LUPRON [Concomitant]
     Active Substance: LEUPROLIDE ACETATE
     Indication: OVARIAN HYPERFUNCTION
     Dosage: UNK

REACTIONS (4)
  - Radiation necrosis [Unknown]
  - Post procedural infection [Unknown]
  - Disease progression [Unknown]
  - Breast cancer metastatic [Unknown]

NARRATIVE: CASE EVENT DATE: 2013
